FAERS Safety Report 7866431-2 (Version None)
Quarter: 2011Q4

REPORT INFORMATION
  Report Type: 
  Country: None (occurrence: None)
  Receive Date: 20111028
  Receipt Date: 20110616
  Transmission Date: 20120403
  Serious: No
  Sender: FDA-Public Use
  Company Number: US-GLAXOSMITHKLINE-A0931730A

PATIENT
  Age: 76 Year
  Sex: Female

DRUGS (7)
  1. HYDROCHLOROTHIAZIDE [Concomitant]
  2. MELATONIN [Concomitant]
  3. SERTRALINE HYDROCHLORIDE [Concomitant]
  4. CLONAZEPAM [Concomitant]
  5. LOSARTAN POTASSIUM [Concomitant]
  6. CORTICOSTEROID [Concomitant]
  7. ADVAIR DISKUS 100/50 [Suspect]
     Indication: ASTHMA
     Dosage: 1PUFF PER DAY
     Route: 055
     Dates: start: 20110609

REACTIONS (2)
  - COUGH [None]
  - HEADACHE [None]
